FAERS Safety Report 7207446-7 (Version None)
Quarter: 2011Q1

REPORT INFORMATION
  Report Type: 
  Country: None (occurrence: None)
  Receive Date: 20110103
  Receipt Date: 20101221
  Transmission Date: 20110831
  Serious: Yes (Disabling)
  Sender: FDA-Public Use
  Company Number: PHHY2010GB86813

PATIENT

DRUGS (3)
  1. DEXAMETHASONE [Suspect]
  2. WARFARIN [Suspect]
  3. REVLIMID [Suspect]
     Indication: MULTIPLE MYELOMA
     Dosage: 25 MG
     Route: 048
     Dates: end: 20101124

REACTIONS (1)
  - DYSPNOEA [None]
